FAERS Safety Report 4535194-0 (Version None)
Quarter: 2004Q4

REPORT INFORMATION
  Report Type: 
  Country: None (occurrence: None)
  Receive Date: 20041222
  Receipt Date: 20041217
  Transmission Date: 20050328
  Serious: Yes (Life-Threatening, Hospitalization)
  Sender: FDA-Public Use
  Company Number: BR-MERCK-0412BRA00068

PATIENT
  Sex: Male

DRUGS (1)
  1. VIOXX [Suspect]
     Indication: SCIATIC NERVE INJURY
     Route: 048

REACTIONS (1)
  - JEJUNAL ULCER PERFORATION [None]
